FAERS Safety Report 15587967 (Version 3)
Quarter: 2018Q4

REPORT INFORMATION
  Report Type: Spontaneous
  Country: FR (occurrence: FR)
  Receive Date: 20181105
  Receipt Date: 20181221
  Transmission Date: 20190205
  Serious: Yes (Life-Threatening, Other)
  Sender: FDA-Public Use
  Company Number: PHHY2018FR146166

PATIENT
  Sex: Male

DRUGS (8)
  1. CEFAZOLIN [Suspect]
     Active Substance: CEFAZOLIN
     Indication: FOETAL EXPOSURE DURING PREGNANCY
     Dosage: UNK
     Route: 064
  2. ATRACURIUM [Suspect]
     Active Substance: ATRACURIUM
     Indication: FOETAL EXPOSURE DURING PREGNANCY
     Dosage: UNK
     Route: 064
  3. DIGOXIN. [Suspect]
     Active Substance: DIGOXIN
     Indication: FOETAL EXPOSURE DURING PREGNANCY
     Dosage: UNK
     Route: 064
  4. BETAMETHASONE. [Suspect]
     Active Substance: BETAMETHASONE
     Indication: FOETAL EXPOSURE DURING PREGNANCY
     Dosage: UNK
     Route: 064
  5. AMIODARONE [Suspect]
     Active Substance: AMIODARONE
     Indication: FOETAL EXPOSURE DURING PREGNANCY
     Dosage: UNK
     Route: 064
  6. ATOSIBAN [Suspect]
     Active Substance: ATOSIBAN
     Indication: FOETAL EXPOSURE DURING PREGNANCY
     Dosage: UNK
     Route: 064
  7. SUFENTANIL [Suspect]
     Active Substance: SUFENTANIL
     Indication: FOETAL EXPOSURE DURING PREGNANCY
     Route: 064
  8. FLECAINIDE [Suspect]
     Active Substance: FLECAINIDE
     Indication: FOETAL EXPOSURE DURING PREGNANCY
     Dosage: UNK
     Route: 064

REACTIONS (5)
  - Drug ineffective [Recovered/Resolved]
  - Oedema [Recovered/Resolved]
  - Foetal exposure during pregnancy [Unknown]
  - Hydrops foetalis [Recovered/Resolved]
  - Condition aggravated [Recovered/Resolved]
